FAERS Safety Report 7064328-1 (Version None)
Quarter: 2010Q4

REPORT INFORMATION
  Report Type: 
  Country: None (occurrence: None)
  Receive Date: 20101027
  Receipt Date: 20101015
  Transmission Date: 20110411
  Serious: Yes (Hospitalization)
  Sender: FDA-Public Use
  Company Number: TW-TYCO HEALTHCARE/MALLINCKRODT-T201002163

PATIENT
  Age: 55 Year
  Sex: Male

DRUGS (2)
  1. PENNSAID [Suspect]
     Indication: ARTHRALGIA
     Dosage: DAILY FOR 7 DAYS
  2. LAGERSTROEMIA SPECIOSA [Suspect]
     Dosage: DAILY

REACTIONS (3)
  - DRUG INTERACTION [None]
  - LACTIC ACIDOSIS [None]
  - RENAL FAILURE ACUTE [None]
